FAERS Safety Report 6881421-4 (Version None)
Quarter: 2010Q3

REPORT INFORMATION
  Report Type: 
  Country: None (occurrence: None)
  Receive Date: 20100728
  Receipt Date: 20100728
  Transmission Date: 20110219
  Serious: Yes (Hospitalization)
  Sender: FDA-Public Use
  Company Number: None

PATIENT
  Age: 84 Year
  Sex: Male
  Weight: 95.6 kg

DRUGS (18)
  1. RISPERIDONE [Suspect]
     Indication: SCHIZOPHRENIA
     Dosage: 2MG PO QHS , 2.5-3MG PO QHS
     Route: 048
     Dates: start: 20030101, end: 20090602
  2. RISPERIDONE [Suspect]
     Indication: SCHIZOPHRENIA
     Dosage: 2MG PO QHS , 2.5-3MG PO QHS
     Route: 048
     Dates: start: 20090729
  3. COUMADIN [Concomitant]
  4. HYDROCHLOROTHIAZIDE [Concomitant]
  5. LISINOPRIL [Concomitant]
  6. METOPROLOL TARTRATE [Concomitant]
  7. AMLODIPINE [Concomitant]
  8. LANOXIN [Concomitant]
  9. TAMSULOSIN HCL [Concomitant]
  10. INSULIN (NOVOLIN + LANTUS) [Concomitant]
  11. METFORMIN HCL [Concomitant]
  12. ACTOS [Concomitant]
  13. DIGOXIN [Concomitant]
  14. SIMVASTATIN [Concomitant]
  15. PREVACID [Concomitant]
  16. GABAPENTIN [Concomitant]
  17. PIOGLITAZONE [Concomitant]
  18. TRAZODONE [Concomitant]

REACTIONS (5)
  - FAECES DISCOLOURED [None]
  - GASTRIC POLYPS [None]
  - GASTRIC ULCER [None]
  - GASTROINTESTINAL HAEMORRHAGE [None]
  - SEDATION [None]
